FAERS Safety Report 22648245 (Version 2)
Quarter: 2023Q2

REPORT INFORMATION
  Report Type: Spontaneous
  Country: US (occurrence: None)
  Receive Date: 20230628
  Receipt Date: 20230630
  Transmission Date: 20230721
  Serious: Yes (Other)
  Sender: FDA-Public Use
  Company Number: US-ROCHE-3356566

PATIENT
  Age: 69 Year
  Sex: Female

DRUGS (8)
  1. VABYSMO [Suspect]
     Active Substance: FARICIMAB-SVOA
     Indication: Diabetic retinal oedema
     Dosage: INJECTED BOTH EYES
     Route: 065
     Dates: start: 20221117
  2. VABYSMO [Suspect]
     Active Substance: FARICIMAB-SVOA
     Indication: Diabetic retinopathy
     Route: 065
     Dates: start: 20221010
  3. VABYSMO [Suspect]
     Active Substance: FARICIMAB-SVOA
     Indication: Neovascular age-related macular degeneration
     Dosage: INJECTED INTO RIGHT EYE
     Route: 065
  4. CIPROFLOXACIN [Concomitant]
     Active Substance: CIPROFLOXACIN
  5. EYLEA [Concomitant]
     Active Substance: AFLIBERCEPT
  6. CEFTAZIDIME [Concomitant]
     Active Substance: CEFTAZIDIME
  7. VANCOMYCIN [Concomitant]
     Active Substance: VANCOMYCIN
  8. PREDNISOLONE [Concomitant]
     Active Substance: PREDNISOLONE

REACTIONS (4)
  - Endophthalmitis [Not Recovered/Not Resolved]
  - Off label use [Unknown]
  - Product contamination [Unknown]
  - Suspected transmission of an infectious agent via product [Unknown]

NARRATIVE: CASE EVENT DATE: 20230509
